FAERS Safety Report 10039196 (Version 1)
Quarter: 2014Q1

REPORT INFORMATION
  Report Type: Report from Study
  Country: CA (occurrence: CA)
  Receive Date: 20140326
  Receipt Date: 20140326
  Transmission Date: 20141002
  Serious: Yes (Other)
  Sender: FDA-Public Use
  Company Number: CA-JNJFOC-20140310914

PATIENT
  Age: 51 Year
  Sex: Male
  Weight: 95.1 kg

DRUGS (4)
  1. REMICADE [Suspect]
     Indication: CROHN^S DISEASE
     Route: 042
     Dates: start: 200903
  2. MTX [Concomitant]
     Route: 065
  3. PANTOLOC [Concomitant]
     Route: 065
  4. FLOMAX [Concomitant]
     Route: 065

REACTIONS (4)
  - Haematemesis [Recovering/Resolving]
  - Dyspepsia [Recovering/Resolving]
  - Vomiting [Recovering/Resolving]
  - Gastrointestinal tract irritation [Recovering/Resolving]
